FAERS Safety Report 6189415-1 (Version None)
Quarter: 2009Q2

REPORT INFORMATION
  Report Type: 
  Country: None (occurrence: None)
  Receive Date: 20090514
  Receipt Date: 20090501
  Transmission Date: 20091009
  Serious: Yes (Hospitalization)
  Sender: FDA-Public Use
  Company Number: DK-RANBAXY-2009RR-23971

PATIENT
  Age: 49 Year
  Sex: Male

DRUGS (6)
  1. CLARITHROMYCIN [Suspect]
     Indication: MYCOBACTERIUM MARINUM INFECTION
     Dosage: 500 MG, BID
  2. DOXYCYCLINE TABLETS [Suspect]
     Indication: MYCOBACTERIUM MARINUM INFECTION
     Dosage: 100 MG, BID
  3. RIFAMPICIN [Suspect]
     Indication: BACTERIAL INFECTION
     Dosage: 600 MG, UNK
  4. ETHAMBUTAMOL [Suspect]
     Indication: BACTERIAL INFECTION
     Dosage: 1200 MG, QID
  5. PREDNISOLONE [Concomitant]
     Indication: SKIN LESION
  6. PREDNISOLONE [Concomitant]
     Indication: ARTHROPATHY

REACTIONS (2)
  - HYPERCALCAEMIA [None]
  - RENAL FAILURE [None]
